FAERS Safety Report 7583288-8 (Version None)
Quarter: 2011Q2

REPORT INFORMATION
  Report Type: 
  Country: None (occurrence: None)
  Receive Date: 20110627
  Receipt Date: 20110627
  Transmission Date: 20111010
  Serious: Yes (Other)
  Sender: FDA-Public Use
  Company Number: None

PATIENT
  Sex: Male
  Weight: 85.1 kg

DRUGS (1)
  1. WARFARIN SODIUM [Suspect]
     Indication: ATRIAL FIBRILLATION
     Dosage: 2MG DAILY PO HAD USED 5MG PRIOR TO TNI
     Route: 048
     Dates: start: 20080611, end: 20110623

REACTIONS (1)
  - RETINAL HAEMORRHAGE [None]
